FAERS Safety Report 12391068 (Version 1)
Quarter: 2016Q2

REPORT INFORMATION
  Report Type: Spontaneous
  Country: ES (occurrence: ES)
  Receive Date: 20160520
  Receipt Date: 20160520
  Transmission Date: 20160815
  Serious: Yes (Life-Threatening, Hospitalization)
  Sender: FDA-Public Use
  Company Number: ES-SA-2016SA096932

PATIENT
  Age: 43 Year
  Sex: Female
  Weight: 78 kg

DRUGS (3)
  1. METHOTREXATE (METHOTREXATE SODIUM) [Suspect]
     Active Substance: METHOTREXATE SODIUM
     Indication: RHEUMATOID ARTHRITIS
     Dosage: 3 TABLETS OF 2.5 ONE DAY A WEEK
     Route: 048
     Dates: start: 20100723, end: 20160301
  2. ACFOL [Concomitant]
     Active Substance: FOLIC ACID
     Dosage: 5 MG, 6 DAYS OF THE WEEK
     Route: 065
  3. ARAVA [Suspect]
     Active Substance: LEFLUNOMIDE
     Indication: RHEUMATOID ARTHRITIS
     Dosage: 1 TABLET 3 TIMES A WEEK (MONDAY , WEDNESDAY AND FRIDAY )
     Route: 048
     Dates: start: 20081022, end: 20160301

REACTIONS (1)
  - Cholecystitis infective [Recovered/Resolved]

NARRATIVE: CASE EVENT DATE: 20160301
